FAERS Safety Report 9224883 (Version 1)
Quarter: 2013Q2

REPORT INFORMATION
  Report Type: Spontaneous
  Country: SE (occurrence: SE)
  Receive Date: 20130411
  Receipt Date: 20130411
  Transmission Date: 20140414
  Serious: Yes (Other)
  Sender: FDA-Public Use
  Company Number: SE-PFIZER INC-2013113712

PATIENT
  Age: 60 Year
  Sex: Male

DRUGS (4)
  1. RAMIPRIL [Suspect]
     Indication: HYPERTENSION
     Dosage: UNK
     Route: 065
     Dates: start: 20120929
  2. KREON [Concomitant]
     Dosage: UNK
  3. FURIX [Concomitant]
     Dosage: UNK
  4. FRAGMIN [Concomitant]
     Dosage: UNK

REACTIONS (1)
  - Breast pain [Not Recovered/Not Resolved]
